FAERS Safety Report 18440746 (Version 6)
Quarter: 2021Q3

REPORT INFORMATION
  Report Type: Spontaneous
  Country: CA (occurrence: CA)
  Receive Date: 20201029
  Receipt Date: 20210929
  Transmission Date: 20211014
  Serious: Yes (Other)
  Sender: FDA-Public Use
  Company Number: CA-PFIZER INC-2020416970

PATIENT
  Age: 54 Year
  Sex: Male

DRUGS (2)
  1. CORTIMENT [BUDESONIDE] [Concomitant]
     Active Substance: BUDESONIDE
     Dosage: UNK
  2. XELJANZ [Suspect]
     Active Substance: TOFACITINIB CITRATE
     Indication: COLITIS ULCERATIVE
     Dosage: 10 MG, 2X/DAY
     Route: 048
     Dates: start: 20201009, end: 2021

REACTIONS (11)
  - Proctalgia [Not Recovered/Not Resolved]
  - Serum ferritin decreased [Unknown]
  - Diarrhoea [Unknown]
  - Haemoglobin decreased [Unknown]
  - Rectal haemorrhage [Not Recovered/Not Resolved]
  - Haematochezia [Unknown]
  - Drug ineffective [Unknown]
  - Impaired quality of life [Unknown]
  - Mucous stools [Unknown]
  - Depressed mood [Unknown]
  - Diversion proctitis [Unknown]

NARRATIVE: CASE EVENT DATE: 202010
